FAERS Safety Report 6531689-9 (Version None)
Quarter: 2010Q1

REPORT INFORMATION
  Report Type: 
  Country: None (occurrence: None)
  Receive Date: 20100107
  Receipt Date: 20100107
  Transmission Date: 20100710
  Serious: Yes (Death)
  Sender: FDA-Public Use
  Company Number: None

PATIENT
  Age: 59 Year
  Sex: Male
  Weight: 93.4 kg

DRUGS (3)
  1. OXALIPLATIN [Suspect]
     Indication: GALLBLADDER CANCER METASTATIC
     Dosage: 185.3 MG EVERY 2 WEEKS IV
     Route: 042
  2. SORAFENIB 200 MG BID BAYER [Suspect]
     Indication: GALLBLADDER CANCER METASTATIC
     Dosage: 200 MG BID X28 DAY BID PO
     Route: 048
  3. CAPECITIBINE 500 MG ROCHE [Suspect]
     Indication: GALLBLADDER CANCER METASTATIC
     Dosage: 5000 MG X5 DOSES PO
     Route: 048

REACTIONS (4)
  - MALIGNANT NEOPLASM PROGRESSION [None]
  - NEUTROPENIA [None]
  - PANCREATIC CARCINOMA [None]
  - WHITE BLOOD CELL COUNT DECREASED [None]
